FAERS Safety Report 15075484 (Version 1)
Quarter: 2018Q2

REPORT INFORMATION
  Report Type: Report from Study
  Country: US (occurrence: US)
  Receive Date: 20180627
  Receipt Date: 20180627
  Transmission Date: 20180711
  Serious: No
  Sender: FDA-Public Use
  Company Number: US-SAOL THERAPEUTICS-2018SAO00610

PATIENT
  Age: 61 Year
  Sex: Male
  Weight: 68.27 kg

DRUGS (40)
  1. BUPIVACAINE. [Suspect]
     Active Substance: BUPIVACAINE
     Dosage: 23.986 MG, \DAY - MAX
     Route: 037
     Dates: start: 20160913
  2. CLONIDINE. [Suspect]
     Active Substance: CLONIDINE
     Dosage: 113.47 ?G, \DAY
     Route: 037
     Dates: end: 20150924
  3. DILAUDID [Suspect]
     Active Substance: HYDROMORPHONE HYDROCHLORIDE
     Dosage: 1.3172 MG, \DAY - MAX
     Route: 037
     Dates: end: 20150924
  4. DILAUDID [Suspect]
     Active Substance: HYDROMORPHONE HYDROCHLORIDE
     Dosage: 1.0021 MG, \DAY
     Route: 037
     Dates: start: 20150924
  5. COMPOUNDED BACLOFEN [Suspect]
     Active Substance: BACLOFEN
     Dosage: 114.13 ?G, \DAY
     Route: 037
     Dates: start: 20160913
  6. COMPOUNDED BACLOFEN [Suspect]
     Active Substance: BACLOFEN
     Dosage: 100.12 ?G, \DAY
     Route: 037
     Dates: start: 20161007
  7. CLONIDINE. [Suspect]
     Active Substance: CLONIDINE
     Dosage: 119.93 ?G, \DAY - MAX
     Route: 037
     Dates: start: 20160913
  8. MORPHINE [Suspect]
     Active Substance: MORPHINE
     Dosage: 3.9977 MG, \DAY - MAX
     Route: 037
     Dates: start: 20160913, end: 20161006
  9. HYDROMORPHONE [Suspect]
     Active Substance: HYDROMORPHONE
     Dosage: 0.9987 MG, \DAY
     Route: 037
     Dates: start: 20161006
  10. HYDROMORPHONE [Suspect]
     Active Substance: HYDROMORPHONE
     Dosage: 2.5567 MG, \DAY - MAX
     Route: 037
     Dates: start: 20161007
  11. COMPOUNDED BACLOFEN [Suspect]
     Active Substance: BACLOFEN
     Dosage: 170.21 ?G, \DAY
     Route: 037
     Dates: end: 20150924
  12. COMPOUNDED BACLOFEN [Suspect]
     Active Substance: BACLOFEN
     Dosage: 299.09 ?G, \DAY - MAX
     Route: 037
     Dates: start: 20150924
  13. BUPIVACAINE. [Suspect]
     Active Substance: BUPIVACAINE
     Dosage: 20.620 MG, \DAY - MAX
     Route: 037
     Dates: start: 20161006
  14. BUPIVACAINE. [Suspect]
     Active Substance: BUPIVACAINE
     Dosage: 25.567 MG, \DAY - MAX
     Route: 037
     Dates: start: 20161007
  15. DILAUDID [Suspect]
     Active Substance: HYDROMORPHONE HYDROCHLORIDE
     Dosage: 0.8510 MG, \DAY
     Route: 037
     Dates: end: 20150924
  16. HYDROMORPHONE [Suspect]
     Active Substance: HYDROMORPHONE
     Dosage: 2.0620 MG, \DAY - MAX
     Route: 037
     Dates: start: 20161006
  17. CLONIDINE. [Suspect]
     Active Substance: CLONIDINE
     Dosage: 49.93 ?G, \DAY
     Route: 037
     Dates: start: 20161006
  18. CLONIDINE. [Suspect]
     Active Substance: CLONIDINE
     Dosage: 103.10 ?G, \DAY - MAX
     Route: 037
     Dates: start: 20161006
  19. CLONIDINE. [Suspect]
     Active Substance: CLONIDINE
     Dosage: 175.63 ?G, \DAY
     Route: 037
     Dates: end: 20150924
  20. DILAUDID [Suspect]
     Active Substance: HYDROMORPHONE HYDROCHLORIDE
     Dosage: 1.4954 MG, \DAY - MAX
     Route: 037
     Dates: start: 20150924
  21. HYDROMORPHONE [Suspect]
     Active Substance: HYDROMORPHONE
     Dosage: 1.5018 MG, \DAY
     Route: 037
     Dates: start: 20161007
  22. COMPOUNDED BACLOFEN [Suspect]
     Active Substance: BACLOFEN
     Dosage: 137.46 ?G, \DAY - MAX
     Route: 037
     Dates: start: 20161006
  23. CLONIDINE. [Suspect]
     Active Substance: CLONIDINE
     Dosage: 75.09 ?G, \DAY
     Route: 037
     Dates: start: 20161007
  24. CLONIDINE. [Suspect]
     Active Substance: CLONIDINE
     Dosage: 127.84 ?G, \DAY
     Route: 037
     Dates: start: 20161007
  25. COMPOUNDED BACLOFEN [Suspect]
     Active Substance: BACLOFEN
     Dosage: 200.41 ?G, \DAY
     Route: 037
     Dates: start: 20150924
  26. MORPHINE [Suspect]
     Active Substance: MORPHINE
     Dosage: 2.8533 MG, \DAY
     Route: 037
     Dates: start: 20160913, end: 20161006
  27. BUPIVACAINE. [Suspect]
     Active Substance: BUPIVACAINE
     Dosage: 9.987 MG, \DAY
     Route: 037
     Dates: start: 20161006
  28. COMPOUNDED BACLOFEN [Suspect]
     Active Substance: BACLOFEN
     Dosage: 66.58 ?G, \DAY
     Route: 037
     Dates: start: 20161006
  29. COMPOUNDED BACLOFEN [Suspect]
     Active Substance: BACLOFEN
     Dosage: 263.44 ?G, \DAY - MAX
     Route: 037
     Dates: end: 20150924
  30. BUPIVACAINE. [Suspect]
     Active Substance: BUPIVACAINE
     Dosage: 17.021 MG, \DAY
     Route: 037
     Dates: end: 20150924
  31. BUPIVACAINE. [Suspect]
     Active Substance: BUPIVACAINE
     Dosage: 15.018 MG, \DAY
     Route: 037
     Dates: start: 20161007
  32. COMPOUNDED BACLOFEN [Suspect]
     Active Substance: BACLOFEN
     Dosage: 170.45 ?G, \DAY - MAX
     Route: 037
     Dates: start: 20161007
  33. BUPIVACAINE. [Suspect]
     Active Substance: BUPIVACAINE
     Dosage: 29.909 MG, \DAY - MAX
     Route: 037
     Dates: start: 20150924
  34. CLONIDINE. [Suspect]
     Active Substance: CLONIDINE
     Dosage: 133.61 ?G, \DAY
     Route: 037
     Dates: start: 20150924
  35. BUPIVACAINE. [Suspect]
     Active Substance: BUPIVACAINE
     Dosage: 26.344 MG, \DAY - MAX
     Route: 037
     Dates: end: 20150924
  36. BUPIVACAINE. [Suspect]
     Active Substance: BUPIVACAINE
     Dosage: 20.041 MG, \DAY
     Route: 037
     Dates: start: 20150924
  37. BUPIVACAINE. [Suspect]
     Active Substance: BUPIVACAINE
     Dosage: 17.120 MG, \DAY
     Route: 037
     Dates: start: 20160913
  38. CLONIDINE. [Suspect]
     Active Substance: CLONIDINE
     Dosage: 199.39 ?G, \DAY - MAX
     Route: 037
     Dates: start: 20150924
  39. COMPOUNDED BACLOFEN [Suspect]
     Active Substance: BACLOFEN
     Dosage: 159.91 ?G, \DAY - MAX
     Route: 037
     Dates: start: 20160913
  40. CLONIDINE. [Suspect]
     Active Substance: CLONIDINE
     Dosage: 85.60 ?G, \DAY
     Route: 037
     Dates: start: 20160913

REACTIONS (5)
  - Complication associated with device [Not Recovered/Not Resolved]
  - Somnolence [Recovered/Resolved]
  - Pain [Recovered/Resolved]
  - Burning sensation [Recovered/Resolved]
  - Therapeutic response decreased [Recovered/Resolved]

NARRATIVE: CASE EVENT DATE: 20150924
